FAERS Safety Report 25334810 (Version 3)
Quarter: 2025Q2

REPORT INFORMATION
  Report Type: Report from Study
  Country: US (occurrence: US)
  Receive Date: 20250520
  Receipt Date: 20250622
  Transmission Date: 20250716
  Serious: Yes (Hospitalization, Other)
  Sender: ABBVIE
  Company Number: US-ABBVIE-6282922

PATIENT
  Age: 73 Year
  Sex: Male
  Weight: 163.29 kg

DRUGS (13)
  1. RINVOQ [Suspect]
     Active Substance: UPADACITINIB
     Indication: Crohn^s disease
     Dosage: FORM STRENGTH: 45 MILLIGRAM
     Route: 048
     Dates: start: 20240227
  2. LISINOPRIL [Concomitant]
     Active Substance: LISINOPRIL
     Indication: Hypertension
  3. GABAPENTIN [Concomitant]
     Active Substance: GABAPENTIN
     Indication: Neuropathy peripheral
  4. ASPIRIN [Concomitant]
     Active Substance: ASPIRIN
     Indication: Deep vein thrombosis
  5. CYANOCOBALAMIN [Concomitant]
     Active Substance: CYANOCOBALAMIN
     Indication: Vitamin supplementation
  6. IMODIUM [Concomitant]
     Active Substance: LOPERAMIDE HYDROCHLORIDE
     Indication: Diarrhoea
  7. POTASSIUM CITRATE [Concomitant]
     Active Substance: POTASSIUM CITRATE
     Indication: Renal lithiasis prophylaxis
  8. FUROSEMIDE [Concomitant]
     Active Substance: FUROSEMIDE
     Indication: Micturition disorder
  9. SULFASALAZINE [Concomitant]
     Active Substance: SULFASALAZINE
     Indication: Arthritis
  10. ALLOPURINOL [Concomitant]
     Active Substance: ALLOPURINOL
     Indication: Gout
  11. CALCIUM\VITAMIN D [Concomitant]
     Active Substance: CALCIUM\VITAMIN D
     Indication: Supplementation therapy
  12. TAMSULOSIN [Concomitant]
     Active Substance: TAMSULOSIN
     Indication: Swelling
  13. POLYETHYLENE GLYCOL [Concomitant]
     Active Substance: POLYETHYLENE GLYCOL
     Indication: Gastrointestinal obstruction

REACTIONS (2)
  - Obstruction [Recovered/Resolved]
  - Monoplegia [Not Recovered/Not Resolved]

NARRATIVE: CASE EVENT DATE: 20250512
